FAERS Safety Report 7761661-2 (Version None)
Quarter: 2011Q3

REPORT INFORMATION
  Report Type: 
  Country: None (occurrence: None)
  Receive Date: 20110920
  Receipt Date: 20110914
  Transmission Date: 20111222
  Serious: Yes (Hospitalization)
  Sender: FDA-Public Use
  Company Number: US-BRISTOL-MYERS SQUIBB COMPANY-16058679

PATIENT
  Age: 84 Year
  Sex: Male

DRUGS (25)
  1. NITROGLYCERIN [Concomitant]
  2. CELEXA [Concomitant]
  3. RANITIDINE [Concomitant]
     Indication: PREMEDICATION
  4. NICOTINE [Concomitant]
     Dosage: NICOTINE PATCH
  5. MIRALAX [Concomitant]
  6. PLAVIX [Suspect]
  7. SENNA [Concomitant]
  8. DEXAMETHASONE [Concomitant]
     Indication: PREMEDICATION
  9. DOCUSATE [Concomitant]
  10. ASPIRIN [Concomitant]
  11. SIMVASTATIN [Concomitant]
  12. SUCRALFATE [Concomitant]
  13. TERAZOSIN HCL [Concomitant]
  14. VICODIN [Concomitant]
  15. LISINOPRIL [Concomitant]
  16. MAGNESIUM HYDROXIDE TAB [Concomitant]
  17. WARFARIN SODIUM [Suspect]
  18. BENADRYL [Concomitant]
     Indication: PREMEDICATION
  19. COUMADIN [Suspect]
     Indication: ATRIAL FIBRILLATION
  20. METOPROLOL TARTRATE [Concomitant]
  21. OXYCODONE HCL [Concomitant]
  22. PANTOPRAZOLE [Concomitant]
  23. ROPINIROLE [Concomitant]
  24. MIRTAZAPINE [Concomitant]
  25. TYLENOL-500 [Concomitant]
     Indication: PREMEDICATION

REACTIONS (1)
  - HEAD AND NECK CANCER [None]
